FAERS Safety Report 5362958-6 (Version None)
Quarter: 2007Q2

REPORT INFORMATION
  Report Type: 
  Country: None (occurrence: None)
  Receive Date: 20070615
  Receipt Date: 20070607
  Transmission Date: 20071010
  Serious: Yes (Death, Hospitalization)
  Sender: FDA-Public Use
  Company Number: A-CH2007-15203

PATIENT
  Age: 54 Year
  Sex: Male

DRUGS (5)
  1. TRACLEER [Suspect]
     Indication: SKIN ULCER
     Dosage: 125 MG, BID, ORAL, 62.5 MG, BID,ORAL
     Route: 048
     Dates: start: 20060125, end: 20060206
  2. TRACLEER [Suspect]
     Indication: SKIN ULCER
     Dosage: 125 MG, BID, ORAL, 62.5 MG, BID,ORAL
     Route: 048
     Dates: start: 20060207, end: 20070225
  3. PREDNISONE TAB [Concomitant]
  4. CYCLOPHOSPHAMIDE [Concomitant]
  5. ILOMEDINE [Concomitant]

REACTIONS (9)
  - DISEASE PROGRESSION [None]
  - GENERALISED OEDEMA [None]
  - LEFT VENTRICULAR FAILURE [None]
  - MULTI-ORGAN FAILURE [None]
  - MYOCARDITIS [None]
  - PERICARDITIS CONSTRICTIVE [None]
  - RENAL FAILURE [None]
  - RESPIRATORY FAILURE [None]
  - SCLERODERMA [None]
